FAERS Safety Report 19081678 (Version 2)
Quarter: 2021Q2

REPORT INFORMATION
  Report Type: Spontaneous
  Country: JP (occurrence: JP)
  Receive Date: 20210401
  Receipt Date: 20210504
  Transmission Date: 20210717
  Serious: Yes (Hospitalization)
  Sender: FDA-Public Use
  Company Number: JP-JNJFOC-20210313386

PATIENT
  Age: 84 Year
  Sex: Female
  Weight: 33.9 kg

DRUGS (4)
  1. SIMPONI [Suspect]
     Active Substance: GOLIMUMAB
     Indication: RHEUMATOID ARTHRITIS
     Dosage: DOSE UNKNOWN
     Route: 058
     Dates: start: 201608, end: 20200720
  2. AZULFIDINE EN?TABS [Concomitant]
     Active Substance: SULFASALAZINE
     Indication: RHEUMATOID ARTHRITIS
     Dosage: DOSE UNKNOWN
     Route: 048
     Dates: start: 20160412, end: 20200903
  3. DENOTAS [Concomitant]
     Active Substance: CALCIUM CARBONATE\CHOLECALCIFEROL\MAGNESIUM CARBONATE
     Indication: OSTEOPOROSIS
     Dosage: DOSE UNKNOWN
     Route: 048
  4. PRALIA [Concomitant]
     Active Substance: DENOSUMAB
     Indication: OSTEOPOROSIS
     Route: 058

REACTIONS (1)
  - Microscopic polyangiitis [Recovering/Resolving]

NARRATIVE: CASE EVENT DATE: 20200731
